FAERS Safety Report 7678355-4 (Version None)
Quarter: 2011Q3

REPORT INFORMATION
  Report Type: 
  Country: None (occurrence: None)
  Receive Date: 20110811
  Receipt Date: 20110809
  Transmission Date: 20111222
  Serious: No
  Sender: FDA-Public Use
  Company Number: US-PFIZER INC-2011161043

PATIENT
  Age: 59 Year
  Sex: Female

DRUGS (3)
  1. GOLIMUMAB [Concomitant]
     Indication: PSORIATIC ARTHROPATHY
     Dosage: UNK
  2. HUMIRA [Concomitant]
     Indication: PSORIATIC ARTHROPATHY
     Dosage: UNK
  3. LYRICA [Suspect]
     Indication: PSORIATIC ARTHROPATHY
     Dosage: 50 MG, 1X/DAY
     Route: 048
     Dates: start: 20110601, end: 20110701

REACTIONS (2)
  - SWELLING [None]
  - FATIGUE [None]
